FAERS Safety Report 9758645 (Version 1)
Quarter: 2013Q4

REPORT INFORMATION
  Report Type: Spontaneous
  Country: US (occurrence: None)
  Receive Date: 20131216
  Receipt Date: 20131216
  Transmission Date: 20140711
  Serious: Yes (Hospitalization)
  Sender: FDA-Public Use
  Company Number: RB-54259-2013

PATIENT
  Sex: Female

DRUGS (2)
  1. SUBOXONE 8 MG [Suspect]
     Indication: PAIN
     Dosage: (12 MG SUBLINGUAL)
  2. BUTRANS [Suspect]
     Indication: BACK PAIN
     Dosage: (10 ??G 1X/WEEK TRANSDERMAL)

REACTIONS (10)
  - Wrong technique in drug usage process [None]
  - Off label use [None]
  - Blood pressure fluctuation [None]
  - Vomiting [None]
  - Drug withdrawal syndrome [None]
  - Gastroenteritis [None]
  - Nausea [None]
  - Feeling of body temperature change [None]
  - Pyrexia [None]
  - Dehydration [None]
